FAERS Safety Report 14931473 (Version 1)
Quarter: 2018Q2

REPORT INFORMATION
  Report Type: Spontaneous
  Country: US (occurrence: US)
  Receive Date: 20180524
  Receipt Date: 20180524
  Transmission Date: 20180711
  Serious: No
  Sender: FDA-Public Use
  Company Number: US-ALVOGEN-2018-ALVOGEN-095251

PATIENT
  Sex: Female

DRUGS (1)
  1. FENTANYL. [Suspect]
     Active Substance: FENTANYL
     Indication: PRODUCT USED FOR UNKNOWN INDICATION
     Route: 062

REACTIONS (7)
  - Diarrhoea [Unknown]
  - Chills [Unknown]
  - Hyperhidrosis [Unknown]
  - Muscle spasms [Unknown]
  - Withdrawal syndrome [Unknown]
  - Drug effect decreased [Unknown]
  - Product adhesion issue [Unknown]
